FAERS Safety Report 14488146 (Version 2)
Quarter: 2018Q1

REPORT INFORMATION
  Report Type: Report from Study
  Country: US (occurrence: US)
  Receive Date: 20180205
  Receipt Date: 20180315
  Transmission Date: 20180509
  Serious: Yes (Hospitalization, Other)
  Sender: FDA-Public Use
  Company Number: US-REGENERON PHARMACEUTICALS, INC.-2018-12554

PATIENT

DRUGS (2)
  1. EYLEA [Suspect]
     Active Substance: AFLIBERCEPT
     Indication: NEOVASCULAR AGE-RELATED MACULAR DEGENERATION
     Dosage: 2 MG, EVERY 7-8 WEEKS, LEFT EYE
     Route: 031
     Dates: start: 20160629
  2. EYLEA [Suspect]
     Active Substance: AFLIBERCEPT
     Dosage: 2 MG, EVERY 7-8 WEEKS, LAST DOSE, LEFT EYE
     Route: 031
     Dates: start: 20170926, end: 20170926

REACTIONS (3)
  - Drug dose omission [Unknown]
  - Hip surgery [Unknown]
  - Procedural pain [Unknown]

NARRATIVE: CASE EVENT DATE: 2017
